FAERS Safety Report 8763830 (Version 1)
Quarter: 2012Q4

REPORT INFORMATION
  Report Type: 
  Country: US (occurrence: US)
  Receive Date: 20120831
  Receipt Date: 20120831
  Transmission Date: 20130627
  Serious: Yes (Death, Other)
  Sender: FDA-Public Use
  Company Number: US-SHIRE-ALL1-2012-04099

PATIENT
  Age: 77 Year
  Sex: Male

DRUGS (1)
  1. FOSRENOL [Suspect]
     Indication: HYPERPHOSPHATAEMIA
     Dosage: 6000 mg, 1x/day:qd
     Route: 048
     Dates: start: 20110117

REACTIONS (3)
  - Death [Fatal]
  - Respiratory disorder [Unknown]
  - Prescribed overdose [Recovered/Resolved]
